FAERS Safety Report 19263185 (Version 2)
Quarter: 2024Q3

REPORT INFORMATION
  Report Type: Spontaneous
  Country: DE (occurrence: DE)
  Receive Date: 20210517
  Receipt Date: 20240910
  Transmission Date: 20241016
  Serious: Yes (Other)
  Sender: ALKEM
  Company Number: None

PATIENT
  Age: 34 Year
  Sex: Female

DRUGS (5)
  1. PREGABALIN [Suspect]
     Active Substance: PREGABALIN
     Indication: Product used for unknown indication
     Dosage: UNK
     Route: 065
  2. .ALPHA.-PYRROLIDINOVALEROTHIOPHENONE [Suspect]
     Active Substance: .ALPHA.-PYRROLIDINOVALEROTHIOPHENONE
     Indication: Product used for unknown indication
     Dosage: UNK
     Route: 065
  3. ALCOHOL [Suspect]
     Active Substance: ALCOHOL
     Indication: Product used for unknown indication
     Dosage: UNK
     Route: 065
  4. LORAZEPAM [Suspect]
     Active Substance: LORAZEPAM
     Indication: Product used for unknown indication
     Dosage: UNK
     Route: 065
  5. METHYLPHENIDATE ACID [Suspect]
     Active Substance: METHYLPHENIDATE ACID
     Indication: Product used for unknown indication
     Dosage: UNK
     Route: 065

REACTIONS (13)
  - Drug abuse [Unknown]
  - Vestibular disorder [Unknown]
  - Restlessness [Unknown]
  - Bradyphrenia [Unknown]
  - Fine motor skill dysfunction [Unknown]
  - Logorrhoea [Unknown]
  - Perseveration [Unknown]
  - Mental disorder [Unknown]
  - Nervousness [Unknown]
  - Agitation [Unknown]
  - Dysarthria [Unknown]
  - Mydriasis [Unknown]
  - Disturbance in attention [Unknown]
